FAERS Safety Report 13663187 (Version 2)
Quarter: 2018Q1

REPORT INFORMATION
  Report Type: Other
  Country: GB (occurrence: GB)
  Receive Date: 20170619
  Receipt Date: 20180104
  Transmission Date: 20180508
  Serious: Yes (Death, Other)
  Sender: FDA-Public Use
  Company Number: GB-MACLEODS PHARMACEUTICALS US LTD-MAC2017005232

PATIENT

DRUGS (3)
  1. ARIPIPRAZOLE  10 MG [Suspect]
     Active Substance: ARIPIPRAZOLE
     Indication: SCHIZOPHRENIA
     Dosage: 10 MG, QD, IN MORNING
     Route: 048
     Dates: start: 20130801, end: 20161017
  2. PROCYCLIDINE [Concomitant]
     Active Substance: PROCYCLIDINE
     Indication: PRODUCT USED FOR UNKNOWN INDICATION
     Dosage: 5 MG, PRN (AS NECESSARY)
     Route: 065
  3. MIRTAZAPINE. [Concomitant]
     Active Substance: MIRTAZAPINE
     Indication: PRODUCT USED FOR UNKNOWN INDICATION
     Dosage: 30 MG, QD, IN THE MORNING
     Route: 065

REACTIONS (3)
  - Pulmonary embolism [Fatal]
  - Sudden death [Fatal]
  - Pyelonephritis acute [Fatal]

NARRATIVE: CASE EVENT DATE: 20160217
